FAERS Safety Report 7436056-1 (Version None)
Quarter: 2011Q2

REPORT INFORMATION
  Report Type: 
  Country: None (occurrence: None)
  Receive Date: 20110425
  Receipt Date: 20110415
  Transmission Date: 20111010
  Serious: Yes (Other)
  Sender: FDA-Public Use
  Company Number: JP-PFIZER INC-2011087863

PATIENT
  Age: 78 Year
  Sex: Female

DRUGS (7)
  1. LYRICA [Suspect]
     Route: 065
  2. PARIET [Suspect]
     Route: 065
  3. SIGMART [Concomitant]
     Route: 065
  4. PREDONINE [Concomitant]
     Route: 065
  5. MUCOSTA [Concomitant]
     Route: 065
  6. CELECOX [Suspect]
     Dosage: 400 MG, 1X/DAY
     Route: 048
  7. PROGRAF [Suspect]
     Indication: RHEUMATOID ARTHRITIS
     Dosage: 0.5 MG, 1X/DAY
     Route: 048

REACTIONS (2)
  - PLATELET COUNT DECREASED [None]
  - AGRANULOCYTOSIS [None]
